FAERS Safety Report 6386228-2 (Version None)
Quarter: 2009Q3

REPORT INFORMATION
  Report Type: 
  Country: None (occurrence: None)
  Receive Date: 20090929
  Receipt Date: 20090420
  Transmission Date: 20100115
  Serious: No
  Sender: FDA-Public Use
  Company Number: 281539

PATIENT
  Age: 79 Year
  Sex: Female

DRUGS (3)
  1. LUCENTIS [Suspect]
     Indication: MACULAR DEGENERATION
     Dosage: 0.5 MG, PRN, INTRAVITREAL
     Dates: start: 20080101
  2. DIOVAN [Concomitant]
  3. SIMVASTATIN [Concomitant]

REACTIONS (2)
  - HYPOTENSION [None]
  - SOMNOLENCE [None]
